FAERS Safety Report 6020377-3 (Version None)
Quarter: 2008Q4

REPORT INFORMATION
  Report Type: 
  Country: None (occurrence: None)
  Receive Date: 20081226
  Receipt Date: 20081219
  Transmission Date: 20090506
  Serious: Yes (Hospitalization)
  Sender: FDA-Public Use
  Company Number: FR-MERCK-0812FRA00078

PATIENT
  Age: 38 Year
  Sex: Male

DRUGS (5)
  1. PRIMAXIN [Suspect]
     Indication: PYREXIA
     Route: 041
     Dates: start: 20081014, end: 20081017
  2. VANCOMYCIN [Suspect]
     Indication: PYREXIA
     Route: 042
     Dates: start: 20081014, end: 20081017
  3. ACYCLOVIR [Suspect]
     Indication: PYREXIA
     Route: 042
     Dates: start: 20081014, end: 20081017
  4. SULFAMETHOXAZOLE AND TRIMETHOPRIM [Suspect]
     Indication: PYREXIA
     Route: 048
     Dates: start: 20081014, end: 20081017
  5. CANCIDAS [Concomitant]
     Indication: PYREXIA
     Route: 042
     Dates: start: 20081014

REACTIONS (1)
  - CUTANEOUS VASCULITIS [None]
